FAERS Safety Report 8981284 (Version 3)
Quarter: 2013Q1

REPORT INFORMATION
  Report Type: Spontaneous
  Country: BR (occurrence: BR)
  Receive Date: 20121221
  Receipt Date: 20130226
  Transmission Date: 20140127
  Serious: Yes (Other)
  Sender: FDA-Public Use
  Company Number: PHHY2012BR117277

PATIENT
  Sex: Female

DRUGS (6)
  1. GALVUS MET [Suspect]
     Dosage: 1 DF (850/50 MG), DAILY
     Route: 048
     Dates: start: 20121213
  2. DIOVAN AMLO FIX [Suspect]
     Indication: HYPERTENSION
     Dosage: 1 DF (320/5 MG), DAILY
     Route: 048
     Dates: start: 20121213
  3. LOSARTAN [Concomitant]
     Indication: BLOOD PRESSURE
     Dosage: 50 MG, DAILY
  4. MODURETIC [Concomitant]
     Indication: BLOOD PRESSURE
     Dosage: 50 MG, DAILY
  5. LEVOID [Concomitant]
     Indication: THYROID MASS
     Dosage: 1 DF, DAILY
     Route: 048
     Dates: start: 201212
  6. SIMVASTATIN [Concomitant]
     Indication: BLOOD TRIGLYCERIDES
     Dosage: 1 DF, DAILY
     Route: 048

REACTIONS (2)
  - Blood pressure increased [Recovered/Resolved]
  - Pollakiuria [Recovered/Resolved]
